FAERS Safety Report 16440054 (Version 3)
Quarter: 2019Q3

REPORT INFORMATION
  Report Type: Spontaneous
  Country: DE (occurrence: DE)
  Receive Date: 20190617
  Receipt Date: 20190808
  Transmission Date: 20191004
  Serious: Yes (Hospitalization)
  Sender: FDA-Public Use
  Company Number: DE-PFIZER INC-2019254861

PATIENT
  Age: 15 Month
  Sex: Male
  Weight: 11 kg

DRUGS (5)
  1. VOMEX [Suspect]
     Active Substance: DIMENHYDRINATE
     Indication: VOMITING
     Dosage: 1 DF, DAILY
     Route: 054
     Dates: start: 20180624, end: 20180624
  2. UNACID PD [Suspect]
     Active Substance: SULTAMICILLIN TOSYLATE
     Indication: URINARY TRACT INFECTION
     Dosage: 5 ML, 2X/DAY(375MG/5ML)
     Route: 048
     Dates: start: 20180711, end: 20180719
  3. CIPROBAY [Suspect]
     Active Substance: CIPROFLOXACIN
     Indication: URINARY TRACT INFECTION
     Dosage: 2 ML, 1X/DAY
     Route: 048
     Dates: start: 20180704, end: 20180711
  4. CEFIXIME. [Suspect]
     Active Substance: CEFIXIME
     Indication: URINARY TRACT INFECTION
     Dosage: 2.5 ML, 2X/DAY(100MG/5ML)
     Route: 048
     Dates: start: 20180625, end: 20180701
  5. LINEZOLID. [Suspect]
     Active Substance: LINEZOLID
     Indication: URINARY TRACT INFECTION
     Dosage: 5 ML, 3X/DAY(100MG/5ML)
     Route: 048
     Dates: start: 20180711, end: 20180712

REACTIONS (8)
  - Gastrointestinal pain [Unknown]
  - Diarrhoea [Unknown]
  - Off label use [Unknown]
  - Hypersensitivity [Unknown]
  - Disease recurrence [Unknown]
  - Pyrexia [Unknown]
  - Vomiting [Unknown]
  - Product use in unapproved indication [Unknown]

NARRATIVE: CASE EVENT DATE: 2018
